FAERS Safety Report 9118999 (Version 1)
Quarter: 2013Q1

REPORT INFORMATION
  Report Type: Spontaneous
  Country: US (occurrence: None)
  Receive Date: 20130221
  Receipt Date: 20130221
  Transmission Date: 20140127
  Serious: Yes (Hospitalization)
  Sender: FDA-Public Use
  Company Number: None

PATIENT
  Age: 55 Year
  Sex: Female
  Weight: 86.18 kg

DRUGS (1)
  1. LEVOFLAXACIN 500MG DR. REDDY [Suspect]
     Indication: SINUSITIS
     Dosage: 1 DAILY PO
     Route: 048
     Dates: start: 20130107, end: 20130117

REACTIONS (2)
  - Confusional state [None]
  - Memory impairment [None]
